FAERS Safety Report 5933524-6 (Version None)
Quarter: 2008Q4

REPORT INFORMATION
  Report Type: 
  Country: None (occurrence: None)
  Receive Date: 20081028
  Receipt Date: 20081028
  Transmission Date: 20090506
  Serious: Yes (Other)
  Sender: FDA-Public Use
  Company Number: None

PATIENT
  Age: 54 Year
  Sex: Male
  Weight: 79.3795 kg

DRUGS (1)
  1. ELOXATIN [Suspect]
     Dosage: 170MG Q2WKS, IV
     Route: 042
     Dates: start: 20081027

REACTIONS (3)
  - FEELING HOT [None]
  - PRURITUS [None]
  - RASH ERYTHEMATOUS [None]
